FAERS Safety Report 15597036 (Version 1)
Quarter: 2018Q4

REPORT INFORMATION
  Report Type: Spontaneous
  Country: CN (occurrence: CN)
  Receive Date: 20181108
  Receipt Date: 20181108
  Transmission Date: 20190205
  Serious: Yes (Other)
  Sender: FDA-Public Use
  Company Number: CN-BAXTER-2018BAX027227

PATIENT
  Age: 29 Year
  Sex: Male

DRUGS (1)
  1. 20% MANNITOL INJECTION [Suspect]
     Active Substance: MANNITOL
     Indication: CRANIOCEREBRAL INJURY
     Route: 041
     Dates: start: 20180813, end: 20180813

REACTIONS (2)
  - Temperature intolerance [Recovered/Resolved]
  - Chills [Recovered/Resolved]

NARRATIVE: CASE EVENT DATE: 20180813
